FAERS Safety Report 7837706 (Version 2)
Quarter: 2013Q3

REPORT INFORMATION
  Report Type: Spontaneous
  Country: US (occurrence: US)
  Receive Date: 20110302
  Receipt Date: 20130725
  Transmission Date: 20140515
  Serious: Yes (Hospitalization, Other)
  Sender: FDA-Public Use
  Company Number: US-PFIZER INC-2009276459

PATIENT
  Age: 52 Year
  Sex: Female
  Weight: 75 kg

DRUGS (22)
  1. DILANTIN [Suspect]
     Indication: CONVULSION
     Dosage: 1 G, 1X/DAY
     Route: 042
     Dates: start: 20061214
  2. DILANTIN [Suspect]
     Dosage: 100 MG, 3X/DAY
     Route: 042
     Dates: start: 20061214
  3. DILANTIN [Suspect]
     Dosage: 400 MG, 1X/DAY
     Route: 040
     Dates: start: 20061220, end: 20061220
  4. DILANTIN [Suspect]
     Dosage: 1 G, 1X/DAY
     Route: 042
     Dates: start: 20061220, end: 20061220
  5. DILANTIN [Suspect]
     Dosage: 750 MG, 1X/DAY
     Route: 040
     Dates: start: 20061221, end: 20061221
  6. DILANTIN [Suspect]
     Indication: CONVULSION
     Dosage: 100 MG, 3X/DAY
     Route: 048
     Dates: start: 20061214
  7. DILANTIN [Suspect]
     Dosage: 150 MG, 3X/DAY
     Route: 048
     Dates: end: 20070124
  8. BACTRIM [Concomitant]
     Indication: URINARY TRACT INFECTION
     Dosage: UNK
     Route: 042
     Dates: start: 200612
  9. BACTRIM [Concomitant]
     Indication: URINARY TRACT INFECTION
     Dosage: UNK
     Route: 048
     Dates: start: 200612
  10. DILAUDID [Concomitant]
     Indication: BACK PAIN
     Dosage: 1 TO 2 MG
     Route: 058
  11. COLACE [Concomitant]
     Dosage: 100 MG, 2X/DAY
     Route: 048
     Dates: start: 20070103
  12. LACTULOSE [Concomitant]
     Dosage: UNK
  13. PROTONIX [Concomitant]
     Dosage: 40 MG, 1X/DAY
     Route: 048
  14. PRILOSEC [Concomitant]
     Dosage: 20 MG, 1X/DAY
     Route: 048
  15. LOPRESSOR [Concomitant]
     Dosage: 50 MG, 1X/DAY
     Route: 048
  16. SYNTHROID [Concomitant]
     Dosage: 125 UG, 1X/DAY
     Route: 048
  17. PREMARIN [Concomitant]
     Dosage: 0.625 MG, 1X/DAY
     Route: 048
  18. NEURONTIN [Concomitant]
     Dosage: 200 MG, 3X/DAY
     Route: 048
  19. LYRICA [Concomitant]
     Dosage: 50 MG, 1X/DAY
     Route: 048
  20. TYLENOL [Concomitant]
     Indication: PAIN
     Dosage: 650 MG, EVERY 4 HRS
  21. MIRALAX [Concomitant]
     Dosage: 17 G, 1X/DAY
     Route: 048
  22. MULTIVITAMINS [Concomitant]
     Dosage: UNK

REACTIONS (1)
  - Stevens-Johnson syndrome [Unknown]
